FAERS Safety Report 4463858-6 (Version None)
Quarter: 2004Q3

REPORT INFORMATION
  Report Type: 
  Country: None (occurrence: None)
  Receive Date: 20040929
  Receipt Date: 20040913
  Transmission Date: 20050211
  Serious: No
  Sender: FDA-Public Use
  Company Number: 2004AC00307

PATIENT
  Age: 35 Year
  Sex: Female

DRUGS (9)
  1. PROPOFOL [Suspect]
     Indication: ANAESTHESIA
  2. RANITIDINE [Concomitant]
  3. TEMAZEPAM [Concomitant]
  4. METOCLOPRAMIDE [Concomitant]
  5. MIDAZOLAM HCL [Concomitant]
  6. ROCURONIUM [Concomitant]
  7. REMIFENTANIL [Concomitant]
  8. SEVOFLURANE [Concomitant]
  9. CEFAZOLIN [Concomitant]

REACTIONS (4)
  - ANAESTHETIC COMPLICATION [None]
  - ANAPHYLACTIC REACTION [None]
  - FIBRINOLYSIS [None]
  - TREATMENT NONCOMPLIANCE [None]
